FAERS Safety Report 9459294 (Version 1)
Quarter: 2013Q3

REPORT INFORMATION
  Report Type: Spontaneous
  Country: KR (occurrence: KR)
  Receive Date: 20130815
  Receipt Date: 20130815
  Transmission Date: 20140515
  Serious: Yes (Hospitalization)
  Sender: FDA-Public Use
  Company Number: KR-MYLANLABS-2013S1017380

PATIENT
  Age: 32 Year
  Sex: Female

DRUGS (1)
  1. BROMOCRIPTINE [Suspect]
     Indication: LACTATION INHIBITION THERAPY
     Route: 048

REACTIONS (2)
  - Cerebral vasoconstriction [Recovered/Resolved]
  - Cerebrovascular accident [Recovered/Resolved]
